FAERS Safety Report 12425775 (Version 1)
Quarter: 2016Q2

REPORT INFORMATION
  Report Type: Spontaneous
  Country: IT (occurrence: IT)
  Receive Date: 20160601
  Receipt Date: 20160601
  Transmission Date: 20160815
  Serious: Yes (Other)
  Sender: FDA-Public Use
  Company Number: IT-WATSON-2016-10886

PATIENT
  Age: 46 Year
  Sex: Female

DRUGS (1)
  1. PALIPERIDONE (ACTAVIS LABORATORIES FL, INC.) [Suspect]
     Active Substance: PALIPERIDONE
     Indication: SCHIZOPHRENIA
     Dosage: 6 MG, DAILY
     Route: 065

REACTIONS (2)
  - Paroxysmal perceptual alteration [Recovering/Resolving]
  - Oculogyric crisis [Unknown]
